FAERS Safety Report 25150789 (Version 1)
Quarter: 2025Q2

REPORT INFORMATION
  Report Type: Spontaneous
  Country: US (occurrence: US)
  Receive Date: 20250402
  Receipt Date: 20250402
  Transmission Date: 20250716
  Serious: No
  Sender: SANOFI AVENTIS
  Company Number: US-SA-2025SA092854

PATIENT
  Age: 83 Year
  Sex: Female
  Weight: 55.79 kg

DRUGS (10)
  1. DUPIXENT [Suspect]
     Active Substance: DUPILUMAB
     Indication: Dermatitis atopic
     Route: 058
     Dates: start: 20230301
  2. NEXLIZET [Concomitant]
     Active Substance: BEMPEDOIC ACID\EZETIMIBE
  3. AMLODIPINE [Concomitant]
     Active Substance: AMLODIPINE BESYLATE
  4. ALBUTEROL SULFATE [Concomitant]
     Active Substance: ALBUTEROL SULFATE
  5. LOSARTAN [Concomitant]
     Active Substance: LOSARTAN
  6. VITAMIN D NOS [Concomitant]
     Active Substance: CHOLECALCIFEROL\ERGOCALCIFEROL
  7. PREDNISONE [Concomitant]
     Active Substance: PREDNISONE
  8. LASTACAFT [Concomitant]
     Active Substance: ALCAFTADINE
  9. ZINC [Concomitant]
     Active Substance: ZINC
  10. HYDROCHLOROTHIAZIDE [Concomitant]
     Active Substance: HYDROCHLOROTHIAZIDE
     Dates: end: 2025

REACTIONS (4)
  - Decreased appetite [Unknown]
  - Malaise [Unknown]
  - Renal disorder [Unknown]
  - Pollakiuria [Unknown]

NARRATIVE: CASE EVENT DATE: 20250101
